FAERS Safety Report 5762831-5 (Version None)
Quarter: 2008Q2

REPORT INFORMATION
  Report Type: 
  Country: None (occurrence: None)
  Receive Date: 20080528
  Receipt Date: 20080327
  Transmission Date: 20081010
  Serious: Yes (Other)
  Sender: FDA-Public Use
  Company Number: PHEH2008US03290

PATIENT
  Age: 79 Year
  Sex: Female
  Weight: 70.3 kg

DRUGS (3)
  1. TASIGNA [Suspect]
     Indication: CHRONIC MYELOID LEUKAEMIA
     Dosage: 400 MG, BID, ORAL ; NO TREATMENT ; ORAL
     Route: 048
     Dates: start: 20080207
  2. LASIX [Concomitant]
  3. AMBIEN [Concomitant]

REACTIONS (2)
  - BLOOD BILIRUBIN INCREASED [None]
  - RASH [None]
